FAERS Safety Report 7142470-4 (Version None)
Quarter: 2010Q4

REPORT INFORMATION
  Report Type: 
  Country: None (occurrence: None)
  Receive Date: 20101207
  Receipt Date: 20101116
  Transmission Date: 20110411
  Serious: No
  Sender: FDA-Public Use
  Company Number: US-PFIZER INC-2010149897

PATIENT
  Sex: Male
  Weight: 74.83 kg

DRUGS (3)
  1. LIPITOR [Suspect]
     Indication: BLOOD CHOLESTEROL INCREASED
     Dosage: 40 MG, DAILY
     Route: 048
     Dates: start: 20101028
  2. METOPROLOL [Concomitant]
     Dosage: 50 MG, 2X/DAY
  3. ACETYLSALICYLIC ACID [Concomitant]
     Dosage: 0.81 MG, DAILY

REACTIONS (3)
  - ILL-DEFINED DISORDER [None]
  - INSOMNIA [None]
  - NERVOUSNESS [None]
